FAERS Safety Report 21219051 (Version 1)
Quarter: 2022Q3

REPORT INFORMATION
  Report Type: Other
  Country: US (occurrence: US)
  Receive Date: 20220816
  Receipt Date: 20220816
  Transmission Date: 20221026
  Serious: Yes (Hospitalization, Other)
  Sender: FDA-Public Use
  Company Number: US-HLS-202201677

PATIENT
  Age: 50 Year
  Sex: Male

DRUGS (4)
  1. CLOZAPINE [Suspect]
     Active Substance: CLOZAPINE
     Dosage: RECHALLENGED ON TREATMENT WITH CLOZAPINE 25 MG, AND THE DOSE WAS GRADUALLY UP TITRATED TO 75 MG DAIL
     Route: 065
  2. CLOZAPINE [Suspect]
     Active Substance: CLOZAPINE
     Dosage: STARTED ON CLOZAPINE 25 MG DAILY AND THE DOSE WAS UP TITRATED TO 300 MG DAILY GRADUALLY OVER 2 WEEKS
     Route: 065
  3. LITHIUM [Concomitant]
     Active Substance: LITHIUM
     Dosage: TWICE DAILY
     Route: 065
  4. AMLODIPINE [Concomitant]
     Active Substance: AMLODIPINE BESYLATE
     Route: 065

REACTIONS (12)
  - Tubulointerstitial nephritis [Recovered/Resolved]
  - Blood pressure increased [Recovered/Resolved]
  - Delusional disorder, mixed type [Unknown]
  - Antipsychotic drug level increased [Recovered/Resolved]
  - Fatigue [Recovered/Resolved]
  - Pyrexia [Recovered/Resolved]
  - Illness [Recovered/Resolved]
  - Chills [Recovered/Resolved]
  - Blood creatinine [Recovered/Resolved]
  - Hyperhidrosis [Recovered/Resolved]
  - Psychotic disorder [Unknown]
  - Aggression [Unknown]
